FAERS Safety Report 21642956 (Version 1)
Quarter: 2022Q4

REPORT INFORMATION
  Report Type: Spontaneous
  Country: US (occurrence: US)
  Receive Date: 20221125
  Receipt Date: 20221125
  Transmission Date: 20230113
  Serious: Yes (Hospitalization)
  Sender: FDA-Public Use
  Company Number: US-BRISTOL-MYERS SQUIBB COMPANY-2022-141684

PATIENT
  Age: 79 Year
  Sex: Female
  Weight: 76.203 kg

DRUGS (1)
  1. ONUREG [Suspect]
     Active Substance: AZACITIDINE
     Indication: Myelofibrosis
     Dosage: 14D OF 28D CYCLE
     Route: 048

REACTIONS (2)
  - Arthralgia [Unknown]
  - Off label use [Unknown]
